FAERS Safety Report 9378657 (Version 1)
Quarter: 2013Q2

REPORT INFORMATION
  Report Type: Spontaneous
  Country: GB (occurrence: None)
  Receive Date: 20130626
  Receipt Date: 20130626
  Transmission Date: 20140414
  Serious: Yes (Other)
  Sender: FDA-Public Use
  Company Number: SYM-2013-04971

PATIENT
  Age: 50 Year
  Sex: Male

DRUGS (1)
  1. 5-FU [Suspect]
     Indication: PRODUCT USED FOR UNKNOWN INDICATION
     Dosage: SUBCONJUNTIVAL

REACTIONS (2)
  - Intraocular pressure increased [None]
  - Corneal disorder [None]
